FAERS Safety Report 7861311-0 (Version None)
Quarter: 2011Q4

REPORT INFORMATION
  Report Type: 
  Country: None (occurrence: None)
  Receive Date: 20111027
  Receipt Date: 20111017
  Transmission Date: 20120403
  Serious: Yes (Other)
  Sender: FDA-Public Use
  Company Number: DK-JNJFOC-20111004234

PATIENT
  Sex: Female

DRUGS (4)
  1. PIVMECILLINAM [Concomitant]
     Route: 064
  2. DEXAMETHASONE [Concomitant]
     Route: 064
  3. INFLIXIMAB, RECOMBINANT [Suspect]
     Indication: MATERNAL EXPOSURE DURING PREGNANCY
     Route: 064
  4. CYANOCOBALAMIN [Concomitant]
     Route: 064

REACTIONS (3)
  - TUBULOINTERSTITIAL NEPHRITIS [None]
  - TALIPES [None]
  - TOXIC SHOCK SYNDROME [None]
